FAERS Safety Report 9702248 (Version 1)
Quarter: 2013Q4

REPORT INFORMATION
  Report Type: Spontaneous
  Country: US (occurrence: None)
  Receive Date: 20131119
  Receipt Date: 20131119
  Transmission Date: 20140711
  Serious: Yes (Hospitalization, Other)
  Sender: FDA-Public Use
  Company Number: 2013US002707

PATIENT
  Age: 30 Year
  Sex: Male
  Weight: 93 kg

DRUGS (10)
  1. ICLUSIG (PONATINIB) TABLET, 15MG [Suspect]
     Indication: CHRONIC MYELOID LEUKAEMIA
     Route: 048
     Dates: start: 20130823, end: 2013
  2. PREDNISONE (PREDNISONE) [Concomitant]
  3. TACROLIMUS (TACROLIMUS) [Concomitant]
  4. ACTIGALL (URSODEOXYCHOLIC ACID) [Concomitant]
  5. MICAFUNGIN (MICAFUNGIN) [Concomitant]
  6. ACYCLOVIR (ACYCLOVIR) [Concomitant]
  7. MEPRON (ATOVAQUONE) [Concomitant]
  8. GLYBURIDE (GLYBURIDE) [Concomitant]
  9. METOPROLOL (METOPROLOL) [Concomitant]
  10. NORVASC (AMLODIPINE BESILATE) [Concomitant]

REACTIONS (2)
  - Graft versus host disease in liver [None]
  - Hepatic enzyme increased [None]
